FAERS Safety Report 18523464 (Version 1)
Quarter: 2020Q4

REPORT INFORMATION
  Report Type: Report from Study
  Country: DE (occurrence: JP)
  Receive Date: 20201119
  Receipt Date: 20201119
  Transmission Date: 20210114
  Serious: Yes (Hospitalization)
  Sender: FDA-Public Use
  Company Number: JP-ELI_LILLY_AND_COMPANY-21335682

PATIENT
  Age: 52 Year
  Sex: Male
  Weight: 63 kg

DRUGS (3)
  1. ULCERLMIN [Concomitant]
     Active Substance: SUCRALFATE
     Indication: GASTRIC ULCER
  2. CETUXIMAB. [Suspect]
     Active Substance: CETUXIMAB
     Indication: LARYNGEAL CANCER
     Dosage: 450 MG:16MAY14-27JUN14  09MAY14  23MAY14:3 DOSE  30MAY:4   6JUN:5   13JUN:6   20JUN14:7  27JUN14
     Route: 041
     Dates: start: 20140509
  3. NEXIUM [Concomitant]
     Active Substance: ESOMEPRAZOLE MAGNESIUM
     Indication: GASTRIC ULCER

REACTIONS (16)
  - Dry skin [Unknown]
  - Hypocalcaemia [Recovered/Resolved]
  - Spinal compression fracture [Recovering/Resolving]
  - Platelet count decreased [Recovered/Resolved]
  - Paronychia [Recovering/Resolving]
  - Dry skin [Recovered/Resolved]
  - Dermatitis acneiform [Recovering/Resolving]
  - Spinal osteoarthritis [Unknown]
  - Radiation skin injury [Recovering/Resolving]
  - Dysphagia [Recovered/Resolved]
  - Mucosal infection [Recovered/Resolved]
  - Pharyngeal inflammation [Recovered/Resolved]
  - Hypomagnesaemia [Recovered/Resolved]
  - Hypokalaemia [Recovered/Resolved]
  - Stomatitis [Recovered/Resolved]
  - Blood alkaline phosphatase increased [Not Recovered/Not Resolved]

NARRATIVE: CASE EVENT DATE: 20140526
